FAERS Safety Report 8788908 (Version 1)
Quarter: 2012Q4

REPORT INFORMATION
  Report Type: 
  Country: US (occurrence: US)
  Receive Date: 20120914
  Receipt Date: 20120914
  Transmission Date: 20130627
  Serious: Yes (Other)
  Sender: FDA-Public Use
  Company Number: US-PFIZER INC-2012226092

PATIENT
  Age: 70 Year
  Sex: Female
  Weight: 144 kg

DRUGS (1)
  1. TOVIAZ [Suspect]
     Dosage: UNK

REACTIONS (2)
  - Vision blurred [Unknown]
  - Faeces discoloured [Unknown]
